FAERS Safety Report 8836146 (Version 2)
Quarter: 2012Q4

REPORT INFORMATION
  Report Type: Report from Study
  Country: DE (occurrence: DE)
  Receive Date: 20121011
  Receipt Date: 20121025
  Transmission Date: 20130627
  Serious: Yes (Death, Hospitalization)
  Sender: FDA-Public Use
  Company Number: DE-ROCHE-720216

PATIENT
  Age: 82 Year
  Sex: Female
  Weight: 49 kg

DRUGS (1)
  1. CAPECITABINE [Suspect]
     Indication: METASTATIC GASTRIC CANCER
     Dosage: 7TH CYCLE STARTED ON 24-APR-2010
     Route: 065

REACTIONS (6)
  - Neoplasm malignant [Fatal]
  - Pleural effusion [Recovering/Resolving]
  - Cardiac failure [Recovered/Resolved]
  - General physical health deterioration [Recovering/Resolving]
  - Dyspnoea [Recovered/Resolved]
  - Skin fissures [Unknown]
